FAERS Safety Report 11746775 (Version 3)
Quarter: 2016Q1

REPORT INFORMATION
  Report Type: Spontaneous
  Country: US (occurrence: US)
  Receive Date: 20151117
  Receipt Date: 20160307
  Transmission Date: 20160525
  Serious: No
  Sender: FDA-Public Use
  Company Number: US-PFIZER INC-2015365824

PATIENT
  Age: 35 Year
  Sex: Female
  Weight: 104 kg

DRUGS (8)
  1. BYDUREON [Concomitant]
     Active Substance: EXENATIDE
     Indication: DIABETES MELLITUS
     Dosage: 2 MG, WEEKLY
     Route: 030
     Dates: start: 20141001
  2. COREG [Concomitant]
     Active Substance: CARVEDILOL
     Indication: TACHYCARDIA
     Dosage: 12.5 MG, 2X/DAY
     Route: 048
     Dates: start: 20101201
  3. PRISTIQ EXTENDED RELEASE [Concomitant]
     Active Substance: DESVENLAFAXINE SUCCINATE
     Indication: DEPRESSION
     Dosage: 50 MG, 1X/DAY
     Route: 048
     Dates: start: 20130601
  4. JUNEL [Concomitant]
     Active Substance: ETHINYL ESTRADIOL\NORETHINDRONE ACETATE
     Indication: CONTRACEPTION
     Dosage: 1 DF, 1X/DAY
     Route: 048
     Dates: start: 20000601
  5. METFORMIN [Concomitant]
     Active Substance: METFORMIN HYDROCHLORIDE
     Indication: DIABETES MELLITUS
     Dosage: 1000 MG, 2X/DAY
     Route: 048
     Dates: start: 20050201
  6. ALAVERT ALLERGY [Suspect]
     Active Substance: LORATADINE
     Dosage: UNK
  7. ALAVERT ALLERGY [Suspect]
     Active Substance: LORATADINE
     Indication: HYPERSENSITIVITY
     Dosage: 10 MG, 1X/DAY
     Route: 048
     Dates: start: 20130901
  8. ALAVERT ALLERGY [Suspect]
     Active Substance: LORATADINE
     Dosage: UNK, SINGLE
     Route: 048
     Dates: start: 20151021

REACTIONS (3)
  - Poor quality drug administered [Recovered/Resolved]
  - Product taste abnormal [Recovered/Resolved]
  - Dysgeusia [Recovered/Resolved]

NARRATIVE: CASE EVENT DATE: 20140928
